FAERS Safety Report 4850548-0 (Version None)
Quarter: 2005Q4

REPORT INFORMATION
  Report Type: 
  Country: None (occurrence: None)
  Receive Date: 20051208
  Receipt Date: 20050126
  Transmission Date: 20060501
  Serious: Yes (Death)
  Sender: FDA-Public Use
  Company Number: MED000025

PATIENT
  Age: 81 Year
  Sex: Female
  Weight: 60 kg

DRUGS (3)
  1. HEPARIN SODIUM AND 5% DEXTROSE (HEPARIN SODIUM) [Suspect]
     Indication: CEREBROVASCULAR ACCIDENT
     Dosage: IV
     Route: 042
     Dates: start: 20050127, end: 20050203
  2. ASPIRIN [Concomitant]
  3. CLOPIDOGREL [Concomitant]

REACTIONS (1)
  - ACTIVATED PARTIAL THROMBOPLASTIN TIME PROLONGED [None]
